FAERS Safety Report 8633716 (Version 3)
Quarter: 2012Q4

REPORT INFORMATION
  Report Type: 
  Country: FR (occurrence: FR)
  Receive Date: 20120625
  Receipt Date: 20120926
  Transmission Date: 20130627
  Serious: Yes (Disabling)
  Sender: FDA-Public Use
  Company Number: FR-CELGENEUS-056-21880-12061796

PATIENT
  Sex: Male

DRUGS (6)
  1. BACTRIM FORTE [Concomitant]
     Indication: PROPHYLAXIS
     Route: 065
     Dates: start: 20120221, end: 20120529
  2. LEDERFOLINE [Concomitant]
     Indication: PROPHYLAXIS
     Route: 065
     Dates: start: 20120221, end: 20120529
  3. ASPEGIC [Concomitant]
     Indication: THROMBOSIS PROPHYLAXIS
     Dosage: 100 Milligram
     Route: 065
     Dates: start: 20120221, end: 20120529
  4. ZELITREX [Concomitant]
     Indication: PROPHYLAXIS
     Dosage: 500 Milligram
     Route: 065
     Dates: start: 20120221, end: 20120529
  5. REVLIMID [Suspect]
     Indication: MULTIPLE MYELOMA
     Dosage: 25 Milligram
     Route: 048
     Dates: start: 20120221, end: 20120529
  6. DEXAMETHASONE [Concomitant]
     Indication: MULTIPLE MYELOMA
     Route: 065
     Dates: start: 20120221, end: 20120529

REACTIONS (1)
  - Deafness [Not Recovered/Not Resolved]
